FAERS Safety Report 8841015 (Version 2)
Quarter: 2015Q1

REPORT INFORMATION
  Report Type: Report from Study
  Country: US (occurrence: US)
  Receive Date: 20121015
  Receipt Date: 20150206
  Transmission Date: 20150721
  Serious: Yes (Other)
  Sender: FDA-Public Use
  Company Number: US-ROCHE-1139766

PATIENT
  Age: 17 Year
  Sex: Male
  Weight: 57.3 kg

DRUGS (4)
  1. PROTROPIN [Suspect]
     Active Substance: SOMATREM
     Indication: GROWTH HORMONE DEFICIENCY
  2. PROTROPIN [Suspect]
     Active Substance: SOMATREM
     Indication: DWARFISM
     Route: 058
     Dates: start: 199406
  3. TEGRETOL [Concomitant]
     Active Substance: CARBAMAZEPINE
     Route: 048
  4. PROTROPIN [Suspect]
     Active Substance: SOMATREM
     Indication: BODY HEIGHT BELOW NORMAL

REACTIONS (4)
  - Acne [Unknown]
  - Weight increased [Unknown]
  - Skin candida [Unknown]
  - Seizure [Unknown]

NARRATIVE: CASE EVENT DATE: 19951130
